FAERS Safety Report 17722815 (Version 1)
Quarter: 2020Q2

REPORT INFORMATION
  Report Type: Spontaneous
  Country: US (occurrence: US)
  Receive Date: 20200429
  Receipt Date: 20200429
  Transmission Date: 20200714
  Serious: No
  Sender: FDA-Public Use
  Company Number: US-PFIZER INC-2019262544

PATIENT
  Age: 72 Year
  Sex: Female

DRUGS (1)
  1. XELJANZ XR [Suspect]
     Active Substance: TOFACITINIB CITRATE
     Indication: NEUROPATHY PERIPHERAL
     Dosage: 11 MG, DAILY

REACTIONS (3)
  - Dysphonia [Unknown]
  - Product use in unapproved indication [Unknown]
  - Off label use [Unknown]
